FAERS Safety Report 9442426 (Version 4)
Quarter: 2013Q4

REPORT INFORMATION
  Report Type: Spontaneous
  Country: JP (occurrence: JP)
  Receive Date: 20130806
  Receipt Date: 20131011
  Transmission Date: 20140711
  Serious: Yes (Hospitalization)
  Sender: FDA-Public Use
  Company Number: JP-EISAI INC-E2090-02786-SPO-JP

PATIENT
  Age: 66 Year
  Sex: Female

DRUGS (5)
  1. EXCEGRAN [Suspect]
     Indication: EPILEPSY
     Dosage: 200 MG/DAY
     Route: 048
     Dates: start: 201304, end: 20130605
  2. ATORVASTATIN [Suspect]
     Indication: TYPE IIA HYPERLIPIDAEMIA
     Dosage: 10 MG/DAY
     Route: 048
     Dates: start: 20130520, end: 20130605
  3. TAKEPRON [Concomitant]
     Indication: PRODUCT USED FOR UNKNOWN INDICATION
     Dosage: UNKNOWN
  4. MAGMITT [Concomitant]
     Indication: CONSTIPATION
     Dosage: 660 MG/DAY
     Route: 048
     Dates: start: 20130522, end: 20130610
  5. LAC-B [Concomitant]
     Indication: DIARRHOEA
     Dosage: 3 G/DAY
     Route: 048
     Dates: start: 20130529, end: 20130604

REACTIONS (1)
  - Stevens-Johnson syndrome [Recovering/Resolving]
